FAERS Safety Report 9638864 (Version 3)
Quarter: 2014Q2

REPORT INFORMATION
  Report Type: Spontaneous
  Country: US (occurrence: US)
  Receive Date: 20131022
  Receipt Date: 20140424
  Transmission Date: 20141212
  Serious: No
  Sender: FDA-Public Use
  Company Number: US-BRISTOL-MYERS SQUIBB COMPANY-19139179

PATIENT
  Age: 73 Year
  Sex: Male
  Weight: 104.31 kg

DRUGS (12)
  1. ELIQUIS [Suspect]
     Indication: ATRIAL FIBRILLATION
     Dosage: TABLETS
     Route: 048
  2. GABAPENTIN [Concomitant]
  3. CELEBREX [Concomitant]
  4. LISINOPRIL [Concomitant]
  5. OMEPRAZOLE [Concomitant]
  6. AMLODIPINE [Concomitant]
  7. METOPROLOL [Concomitant]
  8. ATORVASTATIN [Concomitant]
  9. VENLAFAXINE HCL [Concomitant]
  10. FOLIC ACID [Concomitant]
  11. VITAMIN D [Concomitant]
  12. MAGNESIUM OXIDE [Concomitant]

REACTIONS (3)
  - Drug dose omission [Unknown]
  - Product quality issue [Unknown]
  - Wrong technique in drug usage process [Unknown]
